FAERS Safety Report 9372509 (Version 1)
Quarter: 2013Q2

REPORT INFORMATION
  Report Type: Spontaneous
  Country: DK (occurrence: JP)
  Receive Date: 20130627
  Receipt Date: 20130627
  Transmission Date: 20140414
  Serious: Yes (Other)
  Sender: FDA-Public Use
  Company Number: JP-FRI-1000046209

PATIENT
  Age: 78 Year
  Sex: Female

DRUGS (1)
  1. LEXAPRO [Suspect]
     Dosage: 10 MG
     Route: 048
     Dates: end: 20121217

REACTIONS (1)
  - Granulocyte count decreased [Recovered/Resolved]
